FAERS Safety Report 6930210-0 (Version None)
Quarter: 2010Q3

REPORT INFORMATION
  Report Type: 
  Country: None (occurrence: None)
  Receive Date: 20100818
  Receipt Date: 20100806
  Transmission Date: 20110219
  Serious: Yes (Hospitalization, Other)
  Sender: FDA-Public Use
  Company Number: PHFR2010GB00663

PATIENT
  Sex: Male

DRUGS (8)
  1. CLOZARIL [Suspect]
     Indication: SCHIZOPHRENIA
     Dosage: UNK
     Dates: start: 19950525
  2. CLOZARIL [Suspect]
     Dosage: 300 MG, QD
     Dates: start: 20100521
  3. CLOZARIL [Suspect]
     Dosage: 950 MG, QD
  4. CLOZARIL [Suspect]
     Dosage: 850 MG
     Route: 048
  5. AMISULPRIDE [Concomitant]
     Indication: SCHIZOPHRENIA
     Dosage: 400 MG, BID
     Route: 048
  6. VALPROATE SEMISODIUM [Concomitant]
     Indication: SCHIZOPHRENIA
     Dosage: 1000 MG, BID
     Route: 048
  7. SIMVASTATIN [Concomitant]
     Indication: BLOOD CHOLESTEROL INCREASED
     Dosage: 40 MG
     Route: 048
  8. LACTULOSE [Concomitant]
     Indication: CONSTIPATION
     Dosage: UNK, BD
     Route: 048

REACTIONS (5)
  - DEPRESSED LEVEL OF CONSCIOUSNESS [None]
  - DIARRHOEA [None]
  - HYPOTONIA [None]
  - LOWER RESPIRATORY TRACT INFECTION [None]
  - TRANSIENT ISCHAEMIC ATTACK [None]
